FAERS Safety Report 7731297-8 (Version None)
Quarter: 2011Q3

REPORT INFORMATION
  Report Type: 
  Country: None (occurrence: None)
  Receive Date: 20110906
  Receipt Date: 20110826
  Transmission Date: 20111222
  Serious: Yes (Hospitalization, Other)
  Sender: FDA-Public Use
  Company Number: US-ASTRAZENECA-2011SE51762

PATIENT
  Age: 61 Year
  Sex: Female

DRUGS (2)
  1. PREVACID [Concomitant]
  2. NEXIUM [Suspect]
     Route: 048

REACTIONS (5)
  - CARDIAC PROCEDURE COMPLICATION [None]
  - PAIN [None]
  - BARRETT'S OESOPHAGUS [None]
  - MOBILITY DECREASED [None]
  - HIATUS HERNIA [None]
